FAERS Safety Report 24726155 (Version 1)
Quarter: 2024Q4

REPORT INFORMATION
  Report Type: Spontaneous
  Country: GB (occurrence: GB)
  Receive Date: 20241212
  Receipt Date: 20241212
  Transmission Date: 20250115
  Serious: Yes (Other)
  Sender: PERRIGO
  Company Number: GB-MHRA-TPP2124059C4026141YC1733227348058

PATIENT
  Age: 29 Year
  Sex: Female
  Weight: 66 kg

DRUGS (2)
  1. ACETAMINOPHEN [Suspect]
     Active Substance: ACETAMINOPHEN
     Indication: Ill-defined disorder
     Route: 065
  2. ACYCLOVIR [Concomitant]
     Active Substance: ACYCLOVIR
     Indication: Ill-defined disorder
     Dosage: ONE TO BE TAKEN TWICE A DAY FOR PREVENTATIVE TR...
     Route: 065

REACTIONS (2)
  - Periorbital swelling [Unknown]
  - Pruritus [Recovered/Resolved]
